FAERS Safety Report 6293720-8 (Version None)
Quarter: 2009Q3

REPORT INFORMATION
  Report Type: 
  Country: None (occurrence: None)
  Receive Date: 20090803
  Receipt Date: 20090728
  Transmission Date: 20100115
  Serious: Yes (Hospitalization)
  Sender: FDA-Public Use
  Company Number: US-BAYER-200928279NA

PATIENT
  Age: 25 Year
  Sex: Female
  Weight: 57 kg

DRUGS (3)
  1. YAZ [Suspect]
     Indication: CONTRACEPTION
     Dosage: TOTAL DAILY DOSE: 1 DF
     Route: 048
     Dates: start: 20080101
  2. TEGRETOL [Concomitant]
     Dosage: TOTAL DAILY DOSE: 400 MG
  3. TOPAMAX [Concomitant]
     Dosage: TOTAL DAILY DOSE: 25 MG

REACTIONS (3)
  - DIZZINESS [None]
  - FALL [None]
  - HEADACHE [None]
